FAERS Safety Report 18095700 (Version 3)
Quarter: 2020Q3

REPORT INFORMATION
  Report Type: Report from Study
  Country: BR (occurrence: BR)
  Receive Date: 20200731
  Receipt Date: 20200818
  Transmission Date: 20201103
  Serious: Yes (Hospitalization)
  Sender: FDA-Public Use
  Company Number: BR-UCBSA-2020023772

PATIENT
  Age: 36 Year
  Sex: Female
  Weight: 100 kg

DRUGS (1)
  1. CERTOLIZUMAB PEGOL RA [Suspect]
     Active Substance: CERTOLIZUMAB PEGOL
     Indication: RHEUMATOID ARTHRITIS
     Dosage: 400 MILLIGRAM, MONTHLY (QM)
     Route: 058
     Dates: end: 202001

REACTIONS (4)
  - Therapy interrupted [Unknown]
  - Product availability issue [Unknown]
  - Bacterial infection [Recovered/Resolved]
  - Secretion discharge [Unknown]

NARRATIVE: CASE EVENT DATE: 202001
